FAERS Safety Report 14322680 (Version 1)
Quarter: 2017Q4

REPORT INFORMATION
  Report Type: Spontaneous
  Country: US (occurrence: US)
  Receive Date: 20171225
  Receipt Date: 20171225
  Transmission Date: 20180321
  Serious: Yes (Other)
  Sender: FDA-Public Use
  Company Number: US-SA-2017SA259459

PATIENT
  Sex: Male

DRUGS (2)
  1. LANTUS SOLOSTAR [Suspect]
     Active Substance: INSULIN GLARGINE
     Dosage: DOSE:20 UNIT(S)
     Route: 051
     Dates: start: 2014
  2. SOLOSTAR [Suspect]
     Active Substance: DEVICE
     Dates: start: 2014

REACTIONS (1)
  - Dementia Alzheimer^s type [Unknown]
